FAERS Safety Report 24082114 (Version 1)
Quarter: 2024Q3

REPORT INFORMATION
  Report Type: Spontaneous
  Country: US (occurrence: US)
  Receive Date: 20240712
  Receipt Date: 20240712
  Transmission Date: 20241017
  Serious: Yes (Other)
  Sender: SPECGX
  Company Number: US-SPECGX-T202401491

PATIENT
  Sex: Female

DRUGS (1)
  1. ACETAMINOPHEN\HYDROCODONE [Suspect]
     Active Substance: ACETAMINOPHEN\HYDROCODONE
     Indication: Pain
     Dosage: 10/325 MG, 4 TIMES A DAY
     Route: 065

REACTIONS (14)
  - Accident [Unknown]
  - Illness [Unknown]
  - Asthenia [Unknown]
  - Feeding disorder [Unknown]
  - Fatigue [Unknown]
  - Mental disorder [Unknown]
  - Gait disturbance [Unknown]
  - Vomiting [Unknown]
  - Impaired work ability [Unknown]
  - Product taste abnormal [Unknown]
  - Product odour abnormal [Unknown]
  - Product quality issue [Unknown]
  - Loss of personal independence in daily activities [Unknown]
  - Drug ineffective [Unknown]
